FAERS Safety Report 9384029 (Version 2)
Quarter: 2013Q3

REPORT INFORMATION
  Report Type: Spontaneous
  Country: US (occurrence: US)
  Receive Date: 20130705
  Receipt Date: 20130923
  Transmission Date: 20140515
  Serious: Yes (Hospitalization, Other)
  Sender: FDA-Public Use
  Company Number: US-JNJFOC-20130700236

PATIENT
  Sex: Female

DRUGS (10)
  1. TYLENOL [Suspect]
     Route: 048
  2. TYLENOL [Suspect]
     Indication: PRODUCT USED FOR UNKNOWN INDICATION
     Dosage: 01-JAN-1980^S
     Route: 048
     Dates: end: 2004
  3. TYLENOL [Suspect]
     Route: 048
  4. TYLENOL [Suspect]
     Indication: PRODUCT USED FOR UNKNOWN INDICATION
     Dosage: 01-JAN-1980^S
     Route: 048
     Dates: end: 2004
  5. TYLENOL [Suspect]
     Route: 048
  6. TYLENOL [Suspect]
     Indication: PRODUCT USED FOR UNKNOWN INDICATION
     Dosage: 01-JAN-1980^S
     Route: 048
     Dates: end: 2004
  7. TYLENOL [Suspect]
     Route: 048
  8. TYLENOL [Suspect]
     Indication: PRODUCT USED FOR UNKNOWN INDICATION
     Dosage: 01-JAN-1980^S
     Route: 048
     Dates: end: 2004
  9. TYLENOL [Suspect]
     Route: 048
  10. TYLENOL [Suspect]
     Indication: PRODUCT USED FOR UNKNOWN INDICATION
     Dosage: 01-JAN-1980^S
     Route: 048
     Dates: end: 2004

REACTIONS (6)
  - Liver injury [Unknown]
  - Rash pustular [Not Recovered/Not Resolved]
  - Exposure during pregnancy [Unknown]
  - Dry skin [Not Recovered/Not Resolved]
  - Pruritus [Not Recovered/Not Resolved]
  - Skin plaque [Not Recovered/Not Resolved]
